FAERS Safety Report 8357140-4 (Version None)
Quarter: 2012Q2

REPORT INFORMATION
  Report Type: 
  Country: None (occurrence: None)
  Receive Date: 20120514
  Receipt Date: 20120507
  Transmission Date: 20120825
  Serious: Yes (Hospitalization)
  Sender: FDA-Public Use
  Company Number: US-BAYER-2012-046260

PATIENT
  Age: 36 Year
  Sex: Female

DRUGS (4)
  1. YASMIN [Suspect]
     Indication: DYSFUNCTIONAL UTERINE BLEEDING
  2. NAPROSYN [Concomitant]
  3. VICODIN [Concomitant]
  4. KEFLEX [Concomitant]
     Dosage: UNK
     Dates: start: 20030701

REACTIONS (2)
  - PULMONARY EMBOLISM [None]
  - DEEP VEIN THROMBOSIS [None]
